FAERS Safety Report 8106053-1 (Version None)
Quarter: 2012Q1

REPORT INFORMATION
  Report Type: 
  Country: None (occurrence: None)
  Receive Date: 20120202
  Receipt Date: 20120121
  Transmission Date: 20120608
  Serious: Yes (Hospitalization)
  Sender: FDA-Public Use
  Company Number: US-PAR PHARMACEUTICAL, INC-2012SCPR003931

PATIENT

DRUGS (4)
  1. PREDNISONE TAB [Concomitant]
     Indication: PRODUCT USED FOR UNKNOWN INDICATION
     Dosage: UNK, UNKNOWN
     Route: 048
  2. GILENYA [Interacting]
     Indication: MULTIPLE SCLEROSIS RELAPSE
     Dosage: 0.5 MG, SINGLE
     Route: 048
  3. RISPERIDONE [Suspect]
     Indication: MILD MENTAL RETARDATION
     Dosage: 0.25 MG EVERY MORNING AND 1 MG EVERY EVENING
     Route: 065
  4. METHYLPREDNISOLONE [Concomitant]
     Indication: MULTIPLE SCLEROSIS RELAPSE
     Dosage: 1 G, QD

REACTIONS (8)
  - MULTIPLE SCLEROSIS RELAPSE [None]
  - MALAISE [None]
  - CARDIAC ARREST [None]
  - BRADYCARDIA [None]
  - CONVULSION [None]
  - NAUSEA [None]
  - DRUG INTERACTION [None]
  - UNRESPONSIVE TO STIMULI [None]
